FAERS Safety Report 8579393-X (Version None)
Quarter: 2012Q3

REPORT INFORMATION
  Report Type: 
  Country: None (occurrence: None)
  Receive Date: 20120808
  Receipt Date: 20120112
  Transmission Date: 20120928
  Serious: Yes (Death)
  Sender: FDA-Public Use
  Company Number: US-ROCHE-677433

PATIENT
  Sex: Female
  Weight: 114.8 kg

DRUGS (5)
  1. AVASTIN [Suspect]
     Dosage: 4 COURSES OF AVASTIN
     Route: 042
  2. AVASTIN [Suspect]
     Indication: METASTASES TO NERVOUS SYSTEM
     Route: 042
  3. AVASTIN [Suspect]
     Indication: RENAL CANCER
     Route: 042
  4. AVASTIN [Suspect]
     Indication: LUNG NEOPLASM MALIGNANT
     Route: 042
  5. AVASTIN [Suspect]
     Route: 042

REACTIONS (2)
  - DISEASE PROGRESSION [None]
  - WEIGHT DECREASED [None]
